FAERS Safety Report 6659930-2 (Version None)
Quarter: 2010Q1

REPORT INFORMATION
  Report Type: 
  Country: None (occurrence: None)
  Receive Date: 20100330
  Receipt Date: 20100323
  Transmission Date: 20100710
  Serious: Yes (Hospitalization, Other)
  Sender: FDA-Public Use
  Company Number: CA-BRISTOL-MYERS SQUIBB COMPANY-13742788

PATIENT
  Age: 8 Year
  Sex: Female
  Weight: 28 kg

DRUGS (2)
  1. IXABEPILONE [Suspect]
     Indication: NEUROBLASTOMA
     Route: 042
     Dates: start: 20070321, end: 20070321
  2. DEXAMETHASONE [Concomitant]

REACTIONS (5)
  - ABDOMINAL PAIN [None]
  - BLOOD GLUCOSE INCREASED [None]
  - HYPERTENSION [None]
  - LYMPHOPENIA [None]
  - UPPER RESPIRATORY TRACT INFECTION [None]
